FAERS Safety Report 5407239-7 (Version None)
Quarter: 2007Q3

REPORT INFORMATION
  Report Type: 
  Country: None (occurrence: None)
  Receive Date: 20070807
  Receipt Date: 20070802
  Transmission Date: 20080115
  Serious: Yes (Other)
  Sender: FDA-Public Use
  Company Number: A0668197A

PATIENT
  Age: 47 Year
  Sex: Female
  Weight: 45.5 kg

DRUGS (1)
  1. AVANDIA [Suspect]
     Route: 048
     Dates: start: 20040101, end: 20060501

REACTIONS (6)
  - ANAEMIA [None]
  - CARDIAC FAILURE [None]
  - MYOCARDIAL INFARCTION [None]
  - OEDEMA [None]
  - PERIARTHRITIS [None]
  - RENAL FAILURE [None]
